FAERS Safety Report 13700758 (Version 1)
Quarter: 2017Q2

REPORT INFORMATION
  Report Type: Spontaneous
  Country: US (occurrence: US)
  Receive Date: 20170629
  Receipt Date: 20170629
  Transmission Date: 20170830
  Serious: No
  Sender: FDA-Public Use
  Company Number: US-PFIZER INC-2017282898

PATIENT
  Age: 79 Year
  Sex: Female
  Weight: 54 kg

DRUGS (1)
  1. VFEND [Suspect]
     Active Substance: VORICONAZOLE
     Indication: LUNG INFECTION
     Dosage: 200 MG, 2X/DAY
     Route: 048

REACTIONS (3)
  - Photophobia [Unknown]
  - Malaise [Unknown]
  - Drug ineffective [Unknown]
